FAERS Safety Report 7052168-9 (Version None)
Quarter: 2010Q4

REPORT INFORMATION
  Report Type: 
  Country: None (occurrence: None)
  Receive Date: 20101019
  Receipt Date: 20101007
  Transmission Date: 20110411
  Serious: Yes (Death, Hospitalization)
  Sender: FDA-Public Use
  Company Number: FR-RB-016666-10

PATIENT
  Sex: Female

DRUGS (1)
  1. SUBUTEX [Suspect]
     Indication: DRUG DEPENDENCE
     Route: 042
     Dates: start: 20030101

REACTIONS (7)
  - ACUTE RESPIRATORY FAILURE [None]
  - CARDIAC FAILURE [None]
  - EMBOLISM ARTERIAL [None]
  - ENDOCARDITIS [None]
  - FATIGUE [None]
  - INTENTIONAL DRUG MISUSE [None]
  - SUBSTANCE ABUSE [None]
